FAERS Safety Report 7967731-8 (Version None)
Quarter: 2011Q4

REPORT INFORMATION
  Report Type: 
  Country: None (occurrence: None)
  Receive Date: 20111209
  Receipt Date: 20111209
  Transmission Date: 20120403
  Serious: Yes (Other)
  Sender: FDA-Public Use
  Company Number: None

PATIENT
  Age: 51 Year
  Sex: Female
  Weight: 61.234 kg

DRUGS (1)
  1. BOTOX [Suspect]
     Indication: MIGRAINE
     Route: 058
     Dates: start: 20111102, end: 20111102

REACTIONS (2)
  - INFLUENZA LIKE ILLNESS [None]
  - PAIN [None]
